FAERS Safety Report 24741795 (Version 1)
Quarter: 2024Q4

REPORT INFORMATION
  Report Type: Report from Study
  Country: CN (occurrence: CN)
  Receive Date: 20241217
  Receipt Date: 20241217
  Transmission Date: 20250115
  Serious: Yes (Death)
  Sender: ROCHE
  Company Number: CN-ROCHE-10000153269

PATIENT
  Age: 79 Year
  Sex: Male
  Weight: 20 kg

DRUGS (1)
  1. TECENTRIQ [Suspect]
     Active Substance: ATEZOLIZUMAB
     Indication: Hepatic cancer
     Dosage: START DATE: END OF NOVEMBER OR BEGINNING OF DECEMBER 2023
     Route: 042
     Dates: start: 2023, end: 2024

REACTIONS (3)
  - Drug ineffective [Unknown]
  - Internal haemorrhage [Fatal]
  - Heart rate irregular [Unknown]

NARRATIVE: CASE EVENT DATE: 20240101
